FAERS Safety Report 13160202 (Version 2)
Quarter: 2017Q1

REPORT INFORMATION
  Report Type: Spontaneous
  Country: US (occurrence: US)
  Receive Date: 20170127
  Receipt Date: 20170301
  Transmission Date: 20170428
  Serious: Yes (Hospitalization)
  Sender: FDA-Public Use
  Company Number: US-ACTELION-A-US2017-148970

PATIENT
  Age: 88 Year
  Sex: Female

DRUGS (16)
  1. ATENOLOL. [Concomitant]
     Active Substance: ATENOLOL
  2. NASONEX [Concomitant]
     Active Substance: MOMETASONE FUROATE
  3. CIPROFLOXACIN. [Concomitant]
     Active Substance: CIPROFLOXACIN
  4. LEVOTHYROXINE SODIUM. [Concomitant]
     Active Substance: LEVOTHYROXINE SODIUM
  5. TRACLEER [Suspect]
     Active Substance: BOSENTAN
     Indication: COR PULMONALE
     Dosage: 125 MG, UNK
     Route: 048
     Dates: start: 20170125
  6. MOBIC [Concomitant]
     Active Substance: MELOXICAM
     Dosage: 7.5/5ML
  7. WARFARIN [Concomitant]
     Active Substance: WARFARIN
  8. FUROSEMIDE. [Concomitant]
     Active Substance: FUROSEMIDE
  9. PREDNISONE. [Concomitant]
     Active Substance: PREDNISONE
  10. METRONIDAZOLE. [Concomitant]
     Active Substance: METRONIDAZOLE
  11. RESTASIS [Concomitant]
     Active Substance: CYCLOSPORINE
  12. CEFDINIR. [Concomitant]
     Active Substance: CEFDINIR
  13. DIAZEPAM. [Concomitant]
     Active Substance: DIAZEPAM
  14. TRIAMTERENE AND HYDROCHLOROTHIAZID [Concomitant]
     Active Substance: HYDROCHLOROTHIAZIDE\TRIAMTERENE
  15. NEXIUM [Concomitant]
     Active Substance: ESOMEPRAZOLE MAGNESIUM
  16. POTASSIUM CHLORIDE. [Concomitant]
     Active Substance: POTASSIUM CHLORIDE

REACTIONS (2)
  - Localised oedema [Unknown]
  - Staphylococcal sepsis [Unknown]
